FAERS Safety Report 4461654-7 (Version None)
Quarter: 2004Q3

REPORT INFORMATION
  Report Type: 
  Country: None (occurrence: None)
  Receive Date: 20040929
  Receipt Date: 20040729
  Transmission Date: 20050211
  Serious: Yes (Life-Threatening, Hospitalization, Other)
  Sender: FDA-Public Use
  Company Number: GB-BRISTOL-MYERS SQUIBB COMPANY-12656088

PATIENT
  Age: 34 Year
  Sex: Male
  Weight: 65 kg

DRUGS (14)
  1. REYATAZ [Suspect]
     Indication: HIV INFECTION
     Route: 048
     Dates: start: 20040714, end: 20040723
  2. DIDANOSINE [Concomitant]
     Route: 048
     Dates: start: 20040714
  3. RITONAVIR [Concomitant]
     Route: 048
     Dates: start: 20040714, end: 20040723
  4. TENOFOVIR [Concomitant]
     Route: 048
     Dates: start: 20040714
  5. ITRACONAZOLE [Concomitant]
     Route: 048
     Dates: start: 20040712
  6. COTRIM [Concomitant]
     Route: 048
     Dates: start: 20030101
  7. CETIRIZINE HCL [Concomitant]
     Route: 048
     Dates: start: 20040101
  8. PARACETAMOL [Concomitant]
     Route: 048
  9. MORPHINE SULFATE [Concomitant]
     Route: 048
  10. TRAMADOL HCL [Concomitant]
     Route: 048
  11. TEMAZEPAM [Concomitant]
     Route: 048
  12. ZOPICLONE [Concomitant]
     Route: 048
  13. KALETRA [Concomitant]
     Route: 048
     Dates: start: 20040201, end: 20040717
  14. ALCOHOL [Concomitant]

REACTIONS (5)
  - DEPRESSION [None]
  - INSOMNIA [None]
  - NIGHTMARE [None]
  - SLEEP DISORDER [None]
  - SUICIDE ATTEMPT [None]
